FAERS Safety Report 6024960-0 (Version None)
Quarter: 2008Q4

REPORT INFORMATION
  Report Type: 
  Country: None (occurrence: None)
  Receive Date: 20081231
  Receipt Date: 20081219
  Transmission Date: 20090506
  Serious: Yes (Death, Other)
  Sender: FDA-Public Use
  Company Number: FI-PFIZER INC-2008091692

PATIENT

DRUGS (4)
  1. LYRICA [Suspect]
  2. ALPRAZOLAM [Concomitant]
  3. ZOPICLONE [Concomitant]
  4. FENTANYL-100 [Concomitant]

REACTIONS (1)
  - DRUG LEVEL INCREASED [None]
